FAERS Safety Report 24400304 (Version 5)
Quarter: 2025Q1

REPORT INFORMATION
  Report Type: Report from Study
  Country: IE (occurrence: IE)
  Receive Date: 20241005
  Receipt Date: 20250207
  Transmission Date: 20250409
  Serious: Yes (Other)
  Sender: AMGEN
  Company Number: IE-AMGEN-IRLSL2024055210

PATIENT
  Age: 60 Year
  Sex: Male

DRUGS (17)
  1. KYPROLIS [Suspect]
     Active Substance: CARFILZOMIB
     Indication: Plasma cell myeloma
     Route: 042
     Dates: start: 20240105
  2. KYPROLIS [Suspect]
     Active Substance: CARFILZOMIB
     Route: 040
     Dates: start: 20240119
  3. KYPROLIS [Suspect]
     Active Substance: CARFILZOMIB
     Route: 042
     Dates: start: 20240830
  4. KYPROLIS [Suspect]
     Active Substance: CARFILZOMIB
     Route: 042
     Dates: start: 20240927
  5. KYPROLIS [Suspect]
     Active Substance: CARFILZOMIB
     Route: 042
     Dates: start: 20241025
  6. KYPROLIS [Suspect]
     Active Substance: CARFILZOMIB
     Route: 042
     Dates: start: 20241122
  7. KYPROLIS [Suspect]
     Active Substance: CARFILZOMIB
     Route: 040
     Dates: start: 20241220
  8. KYPROLIS [Suspect]
     Active Substance: CARFILZOMIB
     Route: 040
     Dates: start: 20250131
  9. ARANESP [Suspect]
     Active Substance: DARBEPOETIN ALFA
     Indication: Product used for unknown indication
     Route: 058
     Dates: start: 20220630
  10. ASPIRIN [Concomitant]
     Active Substance: ASPIRIN
     Dosage: 75 MILLIGRAM, QD (ONCE DAILY)
     Route: 050
  11. VALTREX [Concomitant]
     Active Substance: VALACYCLOVIR HYDROCHLORIDE
     Dosage: 500 MILLIGRAM, QD ( (ONCE DAILY))
     Route: 050
  12. ESOMEPRAZOLE [Concomitant]
     Active Substance: ESOMEPRAZOLE
     Dosage: 40 MILLIGRAM, QD  (ONCE DAILY)
     Route: 050
  13. LENALIDOMIDE [Concomitant]
     Active Substance: LENALIDOMIDE
     Dosage: 25 MILLIGRAM, QD  (ONCE DAILY)
     Route: 050
  14. CALCIUM CARBONATE [Concomitant]
     Active Substance: CALCIUM CARBONATE
     Dosage: 500 MILLIGRAM, QD  (ONCE DAILY)
     Route: 050
  15. ATIVAN [Concomitant]
     Active Substance: LORAZEPAM
     Dosage: 1 MILLIGRAM, QD  (ONCE DAILY)
     Route: 050
  16. IRON [Concomitant]
     Active Substance: IRON
     Dosage: 305 MILLIGRAM, QD  (ONCE DAILY)
     Route: 050
  17. LUSTRAL [Concomitant]
     Active Substance: SERTRALINE HYDROCHLORIDE
     Dosage: 100 MILLIGRAM, QD  (ONCE DAILY)
     Route: 050

REACTIONS (4)
  - Loss of personal independence in daily activities [Recovered/Resolved]
  - Pain [Recovered/Resolved]
  - Chills [Not Recovered/Not Resolved]
  - Influenza [Not Recovered/Not Resolved]

NARRATIVE: CASE EVENT DATE: 20240101
